FAERS Safety Report 10934696 (Version 2)
Quarter: 2015Q2

REPORT INFORMATION
  Report Type: Spontaneous
  Country: JP (occurrence: JP)
  Receive Date: 20150320
  Receipt Date: 20150422
  Transmission Date: 20150821
  Serious: Yes (Other)
  Sender: FDA-Public Use
  Company Number: JP-ASTRAZENECA-2015SE25513

PATIENT
  Sex: Female

DRUGS (1)
  1. FASLODEX [Suspect]
     Active Substance: FULVESTRANT
     Dosage: DOSE UNKNOWN
     Route: 030
     Dates: start: 201408

REACTIONS (2)
  - Tumour marker increased [Unknown]
  - Dizziness [Unknown]
